FAERS Safety Report 9541555 (Version 1)
Quarter: 2013Q3

REPORT INFORMATION
  Report Type: Spontaneous
  Country: US (occurrence: US)
  Receive Date: 20130923
  Receipt Date: 20130923
  Transmission Date: 20140515
  Serious: Yes (Other)
  Sender: FDA-Public Use
  Company Number: US-AMGEN-USASP2013065371

PATIENT
  Age: 53 Year
  Sex: Female

DRUGS (6)
  1. PROLIA [Suspect]
     Indication: OSTEOPOROSIS POSTMENOPAUSAL
     Route: 065
  2. PRISTIQ [Concomitant]
  3. BENAZEPRIL [Concomitant]
  4. FISH OIL [Concomitant]
  5. NIACIN [Concomitant]
  6. ASPIRIN [Concomitant]
     Dosage: 325 MG, UNK

REACTIONS (3)
  - Tooth fracture [Unknown]
  - Tooth disorder [Unknown]
  - Dental caries [Unknown]
